FAERS Safety Report 9672010 (Version 1)
Quarter: 2013Q4

REPORT INFORMATION
  Report Type: Report from Study
  Country: US (occurrence: US)
  Receive Date: 20131106
  Receipt Date: 20131106
  Transmission Date: 20140711
  Serious: Yes (Life-Threatening, Hospitalization)
  Sender: FDA-Public Use
  Company Number: US-GLAXOSMITHKLINE-A1048486A

PATIENT
  Age: 88 Year
  Sex: Male
  Weight: 86.2 kg

DRUGS (10)
  1. CARVEDILOL [Suspect]
     Indication: PRODUCT USED FOR UNKNOWN INDICATION
     Dosage: 25MG TWICE PER DAY
     Route: 048
     Dates: end: 20130917
  2. HEPARIN SOLUTION FOR INJECTION [Suspect]
     Indication: AORTIC VALVE REPLACEMENT
     Route: 042
     Dates: start: 20130913, end: 20130913
  3. ASA [Concomitant]
  4. PLAVIX [Concomitant]
  5. CANDESARTAN [Concomitant]
  6. ATORVASTATIN [Concomitant]
  7. SALBUTAMOL [Concomitant]
  8. VITAMIN D [Concomitant]
  9. VITAMIN C [Concomitant]
  10. MULTIVITAMIN [Concomitant]

REACTIONS (1)
  - Cardiac arrest [Recovered/Resolved]
